FAERS Safety Report 7388735-2 (Version None)
Quarter: 2011Q2

REPORT INFORMATION
  Report Type: 
  Country: None (occurrence: None)
  Receive Date: 20110401
  Receipt Date: 20110323
  Transmission Date: 20111010
  Serious: Yes (Hospitalization)
  Sender: FDA-Public Use
  Company Number: CA-JNJFOC-20110310165

PATIENT
  Age: 17 Month
  Sex: Female

DRUGS (3)
  1. CONCENTRATED TYLENOL INFANT DROPS [Suspect]
     Indication: PAIN
     Route: 048
  2. INFANTS ADVIL [Concomitant]
     Route: 048
  3. CONCENTRATED TYLENOL INFANT DROPS [Suspect]
     Indication: PYREXIA
     Route: 048

REACTIONS (3)
  - VOMITING [None]
  - CONVULSION [None]
  - DIARRHOEA [None]
